FAERS Safety Report 5555937-7 (Version None)
Quarter: 2007Q4

REPORT INFORMATION
  Report Type: 
  Country: None (occurrence: None)
  Receive Date: 20071213
  Receipt Date: 20071204
  Transmission Date: 20080405
  Serious: Yes (Other)
  Sender: FDA-Public Use
  Company Number: CA-PFIZER INC-2007100721

PATIENT
  Age: 78 Year
  Sex: Female

DRUGS (4)
  1. CELEBREX [Suspect]
     Indication: OSTEOARTHRITIS
     Route: 048
  2. ANALGESICS [Concomitant]
  3. TRAMADOL HCL [Concomitant]
  4. MORPHINE [Concomitant]

REACTIONS (1)
  - CARDIAC VALVE DISEASE [None]
